FAERS Safety Report 9509013 (Version 1)
Quarter: 2013Q3

REPORT INFORMATION
  Report Type: Spontaneous
  Country: US (occurrence: US)
  Receive Date: 20130909
  Receipt Date: 20130909
  Transmission Date: 20140515
  Serious: No
  Sender: FDA-Public Use
  Company Number: US-BRISTOL-MYERS SQUIBB COMPANY-17383506

PATIENT
  Age: 15 Year
  Sex: Female

DRUGS (2)
  1. ABILIFY TABS 5 MG [Suspect]
     Indication: ANXIETY
     Dosage: EVERY MORNING
  2. ABILIFY TABS 5 MG [Suspect]
     Indication: BIPOLAR DISORDER
     Dosage: EVERY MORNING

REACTIONS (1)
  - Tremor [Unknown]
